FAERS Safety Report 11871111 (Version 1)
Quarter: 2015Q4

REPORT INFORMATION
  Report Type: Spontaneous
  Country: JP (occurrence: JP)
  Receive Date: 20151228
  Receipt Date: 20151228
  Transmission Date: 20160305
  Serious: Yes (Other)
  Sender: FDA-Public Use
  Company Number: JP-VIIV HEALTHCARE LIMITED-JP2015JPN179608

PATIENT
  Sex: Female
  Weight: 35 kg

DRUGS (2)
  1. HEPSERA [Suspect]
     Active Substance: ADEFOVIR DIPIVOXIL
     Indication: CHRONIC HEPATITIS B
     Route: 048
  2. ZEFIX [Suspect]
     Active Substance: LAMIVUDINE
     Indication: CHRONIC HEPATITIS B
     Route: 048

REACTIONS (14)
  - Hepatitis [Unknown]
  - Pain [Unknown]
  - Aminoaciduria [Unknown]
  - Hyperphosphatasaemia [Unknown]
  - Hyperphosphaturia [Unknown]
  - Hypophosphataemia [Unknown]
  - Bone pain [Recovering/Resolving]
  - Bone scan abnormal [Recovering/Resolving]
  - Renal disorder [Recovering/Resolving]
  - Fanconi syndrome [Recovering/Resolving]
  - Beta 2 microglobulin urine increased [Unknown]
  - Osteomalacia [Unknown]
  - Renal tubular disorder [Recovering/Resolving]
  - Hypouricaemia [Unknown]
